FAERS Safety Report 12776727 (Version 1)
Quarter: 2016Q3

REPORT INFORMATION
  Report Type: Other
  Country: US (occurrence: US)
  Receive Date: 20160923
  Receipt Date: 20160923
  Transmission Date: 20161109
  Serious: Yes (Hospitalization)
  Sender: FDA-Public Use
  Company Number: US-WOCKHARDT USA, LLC-1057645

PATIENT
  Age: 79 Year
  Sex: Male

DRUGS (8)
  1. CLARITHROMYCIN. [Suspect]
     Active Substance: CLARITHROMYCIN
     Indication: OSTEOMYELITIS
  2. LEVOTHYROXINE. [Concomitant]
     Active Substance: LEVOTHYROXINE
  3. HYDROCORTISONE. [Concomitant]
     Active Substance: HYDROCORTISONE
  4. CARVEDILOL. [Concomitant]
     Active Substance: CARVEDILOL
  5. CLARITHROMYCIN. [Suspect]
     Active Substance: CLARITHROMYCIN
     Indication: MYCOBACTERIUM AVIUM COMPLEX INFECTION
  6. LISINOPRIL. [Concomitant]
     Active Substance: LISINOPRIL
  7. TRAMADOL. [Concomitant]
     Active Substance: TRAMADOL
  8. ACETAMINOPHEN. [Concomitant]
     Active Substance: ACETAMINOPHEN

REACTIONS (1)
  - Drug reaction with eosinophilia and systemic symptoms [Unknown]
